FAERS Safety Report 5625794-9 (Version None)
Quarter: 2008Q1

REPORT INFORMATION
  Report Type: 
  Country: None (occurrence: None)
  Receive Date: 20080212
  Receipt Date: 20080212
  Transmission Date: 20080703
  Serious: Yes (Other)
  Sender: FDA-Public Use
  Company Number: None

PATIENT
  Age: 30 Year
  Sex: Female
  Weight: 83.9154 kg

DRUGS (1)
  1. CHANTIX [Suspect]
     Indication: SMOKING CESSATION THERAPY
     Dosage: 1 MG 2 TIMES PER DAY PO
     Route: 048
     Dates: start: 20071220, end: 20080210

REACTIONS (4)
  - AGITATION [None]
  - DEPRESSION [None]
  - DISTURBANCE IN ATTENTION [None]
  - SELF INJURIOUS BEHAVIOUR [None]
